FAERS Safety Report 20575395 (Version 1)
Quarter: 2022Q1

REPORT INFORMATION
  Report Type: Spontaneous
  Country: CO (occurrence: CO)
  Receive Date: 20220310
  Receipt Date: 20220310
  Transmission Date: 20220423
  Serious: Yes (Other)
  Sender: FDA-Public Use
  Company Number: CO-ENDO PHARMACEUTICALS INC-2022-001356

PATIENT
  Age: 60 Year
  Sex: Male

DRUGS (1)
  1. AVEED [Suspect]
     Active Substance: TESTOSTERONE UNDECANOATE
     Indication: Product used for unknown indication
     Dosage: 1 DF, UNKNOWN
     Route: 065

REACTIONS (16)
  - Hypothalamo-pituitary disorder [Unknown]
  - Testicular hypertrophy [Unknown]
  - Penis disorder [Unknown]
  - Eye colour change [Unknown]
  - Eye disorder [Unknown]
  - Penile size reduced [Unknown]
  - Mental disorder [Unknown]
  - Pain [Unknown]
  - Arthralgia [Unknown]
  - Headache [Unknown]
  - Alopecia [Unknown]
  - Musculoskeletal pain [Unknown]
  - Myalgia [Unknown]
  - Testicular pain [Unknown]
  - Suspected counterfeit product [Unknown]
  - Product barcode issue [Unknown]
